FAERS Safety Report 9470651 (Version 1)
Quarter: 2013Q3

REPORT INFORMATION
  Report Type: Spontaneous
  Country: US (occurrence: None)
  Receive Date: 20130820
  Receipt Date: 20130820
  Transmission Date: 20140515
  Serious: Yes (Disabling, Other)
  Sender: FDA-Public Use
  Company Number: None

PATIENT
  Sex: Male
  Weight: 97.07 kg

DRUGS (6)
  1. DEPO-PROVERA [Suspect]
     Dosage: 1 SHOT
     Dates: start: 20031015, end: 20130315
  2. ZANTAC [Concomitant]
  3. PRILOSEC [Concomitant]
  4. COLACE [Concomitant]
  5. VENTOLIN [Concomitant]
  6. QVAR INHALER [Concomitant]

REACTIONS (2)
  - Dyspnoea [None]
  - No therapeutic response [None]
